FAERS Safety Report 10265152 (Version 1)
Quarter: 2014Q2

REPORT INFORMATION
  Report Type: Report from Study
  Country: US (occurrence: US)
  Receive Date: 20140627
  Receipt Date: 20140627
  Transmission Date: 20141212
  Serious: Yes (Hospitalization)
  Sender: FDA-Public Use
  Company Number: US-SA-2014SA082528

PATIENT
  Age: 56 Year
  Sex: Female
  Weight: 120 kg

DRUGS (11)
  1. TERIFLUNOMIDE [Suspect]
     Indication: MULTIPLE SCLEROSIS RELAPSE
     Dates: start: 20140120
  2. CALCIUM [Concomitant]
     Route: 048
     Dates: start: 2001
  3. VITAMIN B12 [Concomitant]
     Route: 048
     Dates: start: 2009
  4. VITAMIN D3 [Concomitant]
     Route: 048
     Dates: start: 20090702
  5. TYLENOL [Concomitant]
     Route: 048
     Dates: start: 20130301
  6. MODAFINIL [Concomitant]
     Route: 048
     Dates: start: 2008
  7. PRAMIPEXOLE DIHYDROCHLORIDE [Concomitant]
     Route: 048
     Dates: start: 201008
  8. BACLOFEN [Concomitant]
     Route: 048
     Dates: start: 1997
  9. TOPIRAMATE [Concomitant]
     Route: 048
     Dates: start: 20110823
  10. LASIX [Concomitant]
     Route: 048
     Dates: start: 20131003
  11. FENTANYL [Concomitant]
     Route: 023
     Dates: start: 20121008

REACTIONS (1)
  - Clostridium test positive [Not Recovered/Not Resolved]
